FAERS Safety Report 4331560-7 (Version None)
Quarter: 2004Q2

REPORT INFORMATION
  Report Type: 
  Country: None (occurrence: None)
  Receive Date: 20040405
  Receipt Date: 20040319
  Transmission Date: 20050107
  Serious: Yes (Hospitalization)
  Sender: FDA-Public Use
  Company Number: JP-MERCK-0403USA02101

PATIENT
  Age: 4 Year
  Sex: Female
  Weight: 18 kg

DRUGS (3)
  1. AMOXICILLIN [Suspect]
     Indication: STREPTOCOCCAL INFECTION
     Route: 048
     Dates: start: 20040126, end: 20040204
  2. CARBOCYSTEINE [Suspect]
     Route: 048
     Dates: start: 20040126, end: 20040204
  3. PERIACTIN [Suspect]
     Route: 048
     Dates: start: 20040126, end: 20040204

REACTIONS (1)
  - STEVENS-JOHNSON SYNDROME [None]
